FAERS Safety Report 5957241-1 (Version None)
Quarter: 2008Q4

REPORT INFORMATION
  Report Type: 
  Country: None (occurrence: None)
  Receive Date: 20081118
  Receipt Date: 20081107
  Transmission Date: 20090506
  Serious: Yes (Hospitalization)
  Sender: FDA-Public Use
  Company Number: US-ELI_LILLY_AND_COMPANY-US200811001724

PATIENT
  Sex: Female
  Weight: 106.58 kg

DRUGS (18)
  1. BYETTA [Suspect]
     Indication: TYPE 2 DIABETES MELLITUS
     Dosage: 5 UG, 2/D
     Route: 058
     Dates: start: 20080201, end: 20080301
  2. BYETTA [Suspect]
     Dosage: 10 UG, 2/D
     Route: 058
     Dates: start: 20080301
  3. LEVOTHYROXINE SODIUM [Concomitant]
     Indication: HYPOTHYROIDISM
     Dosage: 2.125 UG, DAILY (1/D)
  4. LISINOPRIL [Concomitant]
     Indication: BLOOD PRESSURE
     Dosage: 5 MG, DAILY (1/D)
  5. TOPAMAX [Concomitant]
     Indication: HEADACHE
     Dosage: 50 MG, EACH MORNING
  6. TOPAMAX [Concomitant]
     Dosage: 75 MG, EACH EVENING
  7. ASPIRIN [Concomitant]
     Dosage: 81 MG, DAILY (1/D)
  8. MAGNESIUM OXIDE [Concomitant]
     Dosage: 400 MG, 2/D
  9. COQ10 [Concomitant]
     Dosage: 200 MG, DAILY (1/D)
  10. CYMBALTA [Concomitant]
     Dosage: 30 MG, EACH MORNING
  11. CYMBALTA [Concomitant]
     Dosage: 60 MG, EACH EVENING
  12. SIMVASTATIN [Concomitant]
     Indication: BLOOD CHOLESTEROL
     Dosage: 20 MG, EACH EVENING
  13. WARFARIN SODIUM [Concomitant]
     Indication: ANTICOAGULANT THERAPY
     Dosage: 7.5 MG, 6/W
  14. WARFARIN SODIUM [Concomitant]
     Dosage: 3.75 MG, WEEKLY (1/W)
  15. PROMETHAZINE [Concomitant]
     Indication: NAUSEA
     Dosage: UNK, AS NEEDED
     Route: 054
  16. SENNA [Concomitant]
     Indication: CONSTIPATION
     Dosage: UNK, AS NEEDED
  17. ZOLPIDEM [Concomitant]
     Indication: SLEEP DISORDER
     Dosage: 5 MG, AS NEEDED
  18. CLONAZEPAM [Concomitant]
     Indication: ANXIETY
     Dosage: 0.125 MG, AS NEEDED

REACTIONS (7)
  - ASTHENIA [None]
  - CONVULSION [None]
  - LOSS OF CONSCIOUSNESS [None]
  - MIGRAINE [None]
  - MOBILITY DECREASED [None]
  - THROMBOSIS [None]
  - WEIGHT DECREASED [None]
